FAERS Safety Report 4893651-1 (Version None)
Quarter: 2005Q4

REPORT INFORMATION
  Report Type: 
  Country: None (occurrence: None)
  Receive Date: 20051223
  Receipt Date: 20051005
  Transmission Date: 20060501
  Serious: No
  Sender: FDA-Public Use
  Company Number: 2005PV002857

PATIENT
  Age: 56 Year
  Sex: Female
  Weight: 63.5036 kg

DRUGS (5)
  1. SYMLIN [Suspect]
     Indication: DIABETES MELLITUS INSULIN-DEPENDENT
     Dosage: 30 MCG;TID;SC ; 15 MCG;SC
     Route: 058
     Dates: start: 20050929, end: 20051001
  2. SYMLIN [Suspect]
     Indication: DIABETES MELLITUS INSULIN-DEPENDENT
     Dosage: 30 MCG;TID;SC ; 15 MCG;SC
     Route: 058
     Dates: start: 20051002
  3. GLUCOPHAGE [Concomitant]
  4. HUMALOG MINIMED 712 INSULIN PUMP [Concomitant]
  5. .. [Concomitant]

REACTIONS (2)
  - BLOOD GLUCOSE INCREASED [None]
  - NAUSEA [None]
